FAERS Safety Report 5499375-4 (Version None)
Quarter: 2007Q4

REPORT INFORMATION
  Report Type: 
  Country: None (occurrence: None)
  Receive Date: 20071026
  Receipt Date: 20071024
  Transmission Date: 20080405
  Serious: Yes (Other)
  Sender: FDA-Public Use
  Company Number: A0689556A

PATIENT
  Sex: Male

DRUGS (5)
  1. LAMICTAL [Suspect]
     Indication: BIPOLAR DISORDER
     Dosage: 25MG TWICE PER DAY
     Route: 048
     Dates: start: 20070925
  2. LEXAPRO [Concomitant]
  3. SYMBICORT [Concomitant]
  4. BIAXIN [Concomitant]
  5. ATACAND HCT [Concomitant]

REACTIONS (2)
  - PNEUMONIA [None]
  - RASH [None]
